FAERS Safety Report 20067952 (Version 1)
Quarter: 2021Q4

REPORT INFORMATION
  Report Type: Report from Study
  Country: US (occurrence: None)
  Receive Date: 20211115
  Receipt Date: 20211115
  Transmission Date: 20220303
  Serious: Yes (Death)
  Sender: FDA-Public Use
  Company Number: US-ROCHE-2905684

PATIENT
  Age: 39 Year
  Sex: Male
  Weight: 82.1 kg

DRUGS (2)
  1. OBINUTUZUMAB [Suspect]
     Active Substance: OBINUTUZUMAB
     Indication: Follicular lymphoma
     Dosage: ON DAY 1, LAST DOSE ADMINISTED ON 28/JUL/2021. TREATMENT REPEATS EVERY 28 DAYS FOR UP TO 12 CYCLES I
     Route: 042
     Dates: start: 20210512
  2. LENALIDOMIDE [Suspect]
     Active Substance: LENALIDOMIDE
     Indication: Follicular lymphoma
     Dosage: LAST DOSE ADMINISTERED ON 28/JUL/2021, ON DAYS 1-21. TREATMENT REPEATS EVERY 28 DAYS FOR UP TO 12 CY
     Route: 048
     Dates: start: 20210512

REACTIONS (1)
  - COVID-19 [Fatal]

NARRATIVE: CASE EVENT DATE: 20210815
